FAERS Safety Report 7250587-9 (Version None)
Quarter: 2011Q1

REPORT INFORMATION
  Report Type: 
  Country: None (occurrence: None)
  Receive Date: 20110121
  Receipt Date: 20110121
  Transmission Date: 20110831
  Serious: Yes (Life-Threatening, Hospitalization)
  Sender: FDA-Public Use
  Company Number: None

PATIENT
  Sex: Female
  Weight: 73.0291 kg

DRUGS (1)
  1. OMNIPAQUE 350 [Suspect]
     Dosage: 100ML 1X IV
     Route: 042
     Dates: start: 20101220, end: 20101220

REACTIONS (1)
  - CARDIO-RESPIRATORY ARREST [None]
